FAERS Safety Report 17088008 (Version 1)
Quarter: 2019Q4

REPORT INFORMATION
  Report Type: Spontaneous
  Country: US (occurrence: US)
  Receive Date: 20191128
  Receipt Date: 20191128
  Transmission Date: 20200122
  Serious: No
  Sender: FDA-Public Use
  Company Number: US-TEVA-2019-US-1141985

PATIENT
  Sex: Female

DRUGS (1)
  1. ESTRADIOL. [Suspect]
     Active Substance: ESTRADIOL
     Indication: MENOPAUSAL SYMPTOMS
     Dosage: ESTRADIOL VAGINAL INSERTS FOR TWO YEARS INSERTING TWICE A WEEK IN THE EVENING
     Route: 067
     Dates: start: 2017

REACTIONS (1)
  - Vaginal discharge [Unknown]

NARRATIVE: CASE EVENT DATE: 201910
